FAERS Safety Report 6694894-7 (Version None)
Quarter: 2010Q2

REPORT INFORMATION
  Report Type: 
  Country: None (occurrence: None)
  Receive Date: 20100423
  Receipt Date: 20100413
  Transmission Date: 20101027
  Serious: Yes (Death, Hospitalization)
  Sender: FDA-Public Use
  Company Number: US-JNJFOC-20091207728

PATIENT
  Sex: Female
  Weight: 136.08 kg

DRUGS (4)
  1. TYLENOL [Suspect]
     Route: 048
  2. TYLENOL [Suspect]
     Indication: JOINT SPRAIN
     Route: 048
  3. BLOOD PRESSURE MEDICATION NOS [Concomitant]
  4. LASIX [Concomitant]

REACTIONS (5)
  - DUODENAL ULCER HAEMORRHAGE [None]
  - HYPOVOLAEMIC SHOCK [None]
  - PRODUCT QUALITY ISSUE [None]
  - RENAL FAILURE ACUTE [None]
  - RESPIRATORY FAILURE [None]
